FAERS Safety Report 15825859 (Version 1)
Quarter: 2019Q1

REPORT INFORMATION
  Report Type: Spontaneous
  Country: SE (occurrence: SE)
  Receive Date: 20190115
  Receipt Date: 20190115
  Transmission Date: 20190417
  Serious: Yes (Death)
  Sender: FDA-Public Use
  Company Number: SE-PFIZER INC-2019016844

PATIENT
  Age: 71 Year
  Sex: Male

DRUGS (11)
  1. ALVEDON [Concomitant]
     Active Substance: ACETAMINOPHEN
     Dates: end: 201804
  2. XALKORI [Suspect]
     Active Substance: CRIZOTINIB
     Indication: NON-SMALL CELL LUNG CANCER
     Dosage: 500 MG, DAILY
     Dates: start: 201801, end: 201804
  3. OXYCONTIN [Concomitant]
     Active Substance: OXYCODONE HYDROCHLORIDE
  4. LEUPRORELIN [Concomitant]
     Active Substance: LEUPROLIDE ACETATE
  5. OMECAT [Concomitant]
     Active Substance: OMEPRAZOLE
  6. FURIX [Concomitant]
     Active Substance: FUROSEMIDE
  7. MIRTAZAPINE. [Concomitant]
     Active Substance: MIRTAZAPINE
  8. RAMIPRIL. [Concomitant]
     Active Substance: RAMIPRIL
  9. METOPROLOL. [Concomitant]
     Active Substance: METOPROLOL
  10. OXASCAND [Concomitant]
     Active Substance: OXAZEPAM
  11. FRAGMIN [Concomitant]
     Active Substance: DALTEPARIN SODIUM

REACTIONS (1)
  - Hepatic failure [Fatal]

NARRATIVE: CASE EVENT DATE: 201804
